FAERS Safety Report 14823930 (Version 2)
Quarter: 2019Q3

REPORT INFORMATION
  Report Type: Spontaneous
  Country: US (occurrence: US)
  Receive Date: 20180428
  Receipt Date: 20190703
  Transmission Date: 20191004
  Serious: No
  Sender: FDA-Public Use
  Company Number: US-009507513-1804USA010469

PATIENT
  Sex: Female

DRUGS (2)
  1. ASMANEX [Suspect]
     Active Substance: MOMETASONE FUROATE
     Dosage: 2 PUFFS ONCE DAILY, ROUTE: ^ORAL INHALATION^  ^60 DOSE 00085134102^
     Route: 055
     Dates: start: 20170423
  2. ASMANEX [Suspect]
     Active Substance: MOMETASONE FUROATE
     Dosage: 2 PUFFS ONCE DAILY, ROUTE: ^ORAL INHALATION^  ^60 DOSE 00085134102^
     Route: 055
     Dates: start: 20170423

REACTIONS (4)
  - Incorrect dose administered by device [Unknown]
  - No adverse event [Unknown]
  - Product quality issue [Unknown]
  - Poor quality device used [Unknown]

NARRATIVE: CASE EVENT DATE: 20190618
